FAERS Safety Report 8602979-0 (Version None)
Quarter: 2012Q3

REPORT INFORMATION
  Report Type: 
  Country: None (occurrence: None)
  Receive Date: 20120817
  Receipt Date: 20120705
  Transmission Date: 20120928
  Serious: No
  Sender: FDA-Public Use
  Company Number: US-GLAXOSMITHKLINE-A0940265A

PATIENT
  Sex: Male

DRUGS (1)
  1. VOTRIENT [Suspect]
     Indication: LUNG NEOPLASM MALIGNANT
     Dosage: 800MG PER DAY

REACTIONS (2)
  - THERAPEUTIC RESPONSE DECREASED [None]
  - BIOPSY LUNG [None]
